FAERS Safety Report 8836962 (Version 1)
Quarter: 2012Q4

REPORT INFORMATION
  Report Type: 
  Country: US (occurrence: US)
  Receive Date: 20121011
  Receipt Date: 20121011
  Transmission Date: 20130627
  Serious: No
  Sender: FDA-Public Use
  Company Number: US-009507513-1210USA003517

PATIENT
  Age: 45 Year
  Sex: Female

DRUGS (3)
  1. SAPHRIS [Suspect]
     Indication: BIPOLAR I DISORDER
     Dosage: 5 mg, qd
     Route: 060
     Dates: start: 20120426, end: 20120515
  2. CLONOPIN [Concomitant]
  3. LAMICTAL [Concomitant]

REACTIONS (4)
  - Eye swelling [Recovered/Resolved]
  - Swollen tongue [Recovered/Resolved]
  - Lip swelling [Recovered/Resolved]
  - Inappropriate schedule of drug administration [Unknown]
